FAERS Safety Report 9641419 (Version 2)
Quarter: 2013Q4

REPORT INFORMATION
  Report Type: Spontaneous
  Country: PR (occurrence: PR)
  Receive Date: 20131023
  Receipt Date: 20131023
  Transmission Date: 20140711
  Serious: No
  Sender: FDA-Public Use
  Company Number: PR-ABBVIE-12P-131-1025578-00

PATIENT
  Sex: Female
  Weight: 59.02 kg

DRUGS (2)
  1. LUPRON DEPOT [Suspect]
     Indication: UTERINE LEIOMYOMA
     Dates: start: 20120908, end: 201303
  2. LUPRON DEPOT [Suspect]
     Indication: ENDOMETRIOSIS

REACTIONS (1)
  - Menorrhagia [Recovered/Resolved]
